FAERS Safety Report 11943075 (Version 1)
Quarter: 2016Q1

REPORT INFORMATION
  Report Type: Spontaneous
  Country: US (occurrence: US)
  Receive Date: 20160125
  Receipt Date: 20160125
  Transmission Date: 20160526
  Serious: No
  Sender: FDA-Public Use
  Company Number: US-UNITED THERAPEUTICS-UNT-2015-009824

PATIENT
  Age: 55 Year
  Sex: Female
  Weight: 58.5 kg

DRUGS (5)
  1. REMODULIN [Suspect]
     Active Substance: TREPROSTINIL
     Dosage: 0.022 ?G/KG/MIN, CONTINUING
     Route: 058
  2. REMODULIN [Suspect]
     Active Substance: TREPROSTINIL
     Dosage: UNK
  3. REMODULIN [Suspect]
     Active Substance: TREPROSTINIL
     Indication: PULMONARY HYPERTENSION
     Dosage: 0.002 ?G/KG/MIN, CONTINUING
     Route: 058
     Dates: start: 20150804
  4. REVATIO [Concomitant]
     Active Substance: SILDENAFIL CITRATE
     Indication: PRODUCT USED FOR UNKNOWN INDICATION
  5. REMODULIN [Suspect]
     Active Substance: TREPROSTINIL
     Dosage: 0.024 ?G/KG, CONTINUING

REACTIONS (13)
  - Infusion site pain [Unknown]
  - Infusion site haemorrhage [Unknown]
  - Infusion site rash [Unknown]
  - Decreased appetite [Unknown]
  - Rash [Unknown]
  - Headache [Unknown]
  - Thirst [Unknown]
  - Dry mouth [Unknown]
  - Pain [Unknown]
  - Infusion site erythema [Unknown]
  - Weight decreased [Unknown]
  - Accidental overdose [Unknown]
  - Nausea [Unknown]

NARRATIVE: CASE EVENT DATE: 201508
